FAERS Safety Report 23090095 (Version 1)
Quarter: 2023Q4

REPORT INFORMATION
  Report Type: Spontaneous
  Country: US (occurrence: US)
  Receive Date: 20231020
  Receipt Date: 20231020
  Transmission Date: 20240110
  Serious: Yes (Other)
  Sender: FDA-Public Use
  Company Number: US-NOVOPROD-1130275

PATIENT
  Age: 57 Year
  Sex: Female

DRUGS (1)
  1. WEGOVY [Suspect]
     Active Substance: SEMAGLUTIDE
     Indication: Weight decreased
     Dosage: 2.4 MG, QW
     Route: 058

REACTIONS (3)
  - Knee arthroplasty [Unknown]
  - Hernia repair [Unknown]
  - Back disorder [Unknown]
